FAERS Safety Report 9896256 (Version 2)
Quarter: 2014Q1

REPORT INFORMATION
  Report Type: Spontaneous
  Country: US (occurrence: US)
  Receive Date: 20140213
  Receipt Date: 20140213
  Transmission Date: 20141002
  Serious: No
  Sender: FDA-Public Use
  Company Number: US-BRISTOL-MYERS SQUIBB COMPANY-17438680

PATIENT
  Age: 51 Year
  Sex: Female
  Weight: 64.4 kg

DRUGS (9)
  1. ABATACEPT SUBQ INJECTION 125MG/ML [Suspect]
     Indication: RHEUMATOID ARTHRITIS
     Route: 058
     Dates: start: 20120319
  2. XANAX [Concomitant]
  3. AMBIEN [Concomitant]
  4. ENABLEX [Concomitant]
  5. PREVACID [Concomitant]
  6. REBIF [Concomitant]
  7. SUCRALFATE [Concomitant]
  8. SULFASALAZINE [Concomitant]
  9. TYLENOL [Concomitant]

REACTIONS (2)
  - Drug dose omission [Unknown]
  - Influenza [Not Recovered/Not Resolved]
